FAERS Safety Report 8863519 (Version 1)
Quarter: 2012Q4

REPORT INFORMATION
  Report Type: 
  Country: US (occurrence: US)
  Receive Date: 20121024
  Receipt Date: 20121024
  Transmission Date: 20130627
  Serious: No
  Sender: FDA-Public Use
  Company Number: US-AMGEN-USASP2011063042

PATIENT
  Age: 72 Year
  Sex: Male

DRUGS (8)
  1. ENBREL [Suspect]
     Dosage: 50 mg, qwk
     Route: 058
  2. AVAPRO [Concomitant]
     Dosage: 75 mg, UNK
  3. LIPITOR [Concomitant]
     Dosage: 10 mg, UNK
  4. METHOTREXATE /00113802/ [Concomitant]
  5. FOLIC ACID [Concomitant]
  6. GLUCOSAMIN CHONDR [Concomitant]
  7. PREVACID [Concomitant]
  8. IBUPROFEN [Concomitant]

REACTIONS (2)
  - Muscle spasms [Unknown]
  - Limb discomfort [Unknown]
